FAERS Safety Report 4694189-7 (Version None)
Quarter: 2005Q2

REPORT INFORMATION
  Report Type: 
  Country: None (occurrence: None)
  Receive Date: 20050614
  Receipt Date: 20050218
  Transmission Date: 20051028
  Serious: No
  Sender: FDA-Public Use
  Company Number: USA050291154

PATIENT
  Sex: Male

DRUGS (5)
  1. CIALIS [Suspect]
     Dosage: 20 MG
     Dates: start: 20040101
  2. PROTONIX [Concomitant]
  3. VITAMINS [Concomitant]
  4. AMINO COMPLEX [Concomitant]
  5. ANTIBIOTICS [Concomitant]

REACTIONS (2)
  - PETECHIAE [None]
  - RASH [None]
